FAERS Safety Report 8279406-9 (Version None)
Quarter: 2012Q2

REPORT INFORMATION
  Report Type: 
  Country: None (occurrence: None)
  Receive Date: 20120412
  Receipt Date: 20111006
  Transmission Date: 20120825
  Serious: No
  Sender: FDA-Public Use
  Company Number: US-ASTRAZENECA-2011SE57893

PATIENT
  Age: 44 Year
  Sex: Female

DRUGS (4)
  1. NEXIUM [Suspect]
     Indication: HIATUS HERNIA
     Route: 048
  2. OMEPRAZOLE [Suspect]
     Route: 048
  3. PEPCID [Concomitant]
  4. NEXIUM [Suspect]
     Indication: GASTROOESOPHAGEAL REFLUX DISEASE
     Route: 048

REACTIONS (4)
  - TREATMENT FAILURE [None]
  - DRUG DOSE OMISSION [None]
  - HIATUS HERNIA [None]
  - MALAISE [None]
